FAERS Safety Report 9491938 (Version 2)
Quarter: 2013Q4

REPORT INFORMATION
  Report Type: Spontaneous
  Country: IT (occurrence: None)
  Receive Date: 20130827
  Receipt Date: 20131120
  Transmission Date: 20140711
  Serious: Yes (Other)
  Sender: FDA-Public Use
  Company Number: 2013MPI00490

PATIENT
  Age: 28 Year
  Sex: Male
  Weight: 125 kg

DRUGS (2)
  1. BRENTUXIMAB VEDOTIN [Suspect]
     Indication: GERM CELL CANCER
     Route: 042
     Dates: start: 20130717
  2. OMEPRAZOLE (OMEPRAZOLE) [Concomitant]

REACTIONS (1)
  - Hyperglycaemia [None]
